FAERS Safety Report 10700016 (Version 2)
Quarter: 2015Q2

REPORT INFORMATION
  Report Type: Spontaneous
  Country: FR (occurrence: FR)
  Receive Date: 20150109
  Receipt Date: 20150616
  Transmission Date: 20150821
  Serious: Yes (Death, Hospitalization)
  Sender: FDA-Public Use
  Company Number: FR-JNJFOC-20150104346

PATIENT
  Age: 58 Year
  Sex: Male

DRUGS (1)
  1. IBRUTINIB [Suspect]
     Active Substance: IBRUTINIB
     Indication: CHRONIC LYMPHOCYTIC LEUKAEMIA
     Route: 048
     Dates: start: 20141204

REACTIONS (6)
  - Cardio-respiratory arrest [Fatal]
  - Aspergillus infection [Fatal]
  - Acute kidney injury [Fatal]
  - Hepatic necrosis [Fatal]
  - Systemic candida [Fatal]
  - Splenic infarction [Fatal]

NARRATIVE: CASE EVENT DATE: 201412
